FAERS Safety Report 13405110 (Version 1)
Quarter: 2017Q2

REPORT INFORMATION
  Report Type: Spontaneous
  Country: US (occurrence: US)
  Receive Date: 20170405
  Receipt Date: 20170405
  Transmission Date: 20170830
  Serious: Yes (Other)
  Sender: FDA-Public Use
  Company Number: US-GLAXOSMITHKLINE-US2017047820

PATIENT
  Age: 33 Year
  Sex: Female

DRUGS (9)
  1. ROPINIROLE. [Suspect]
     Active Substance: ROPINIROLE
     Indication: PARKINSONISM
     Dosage: UNK
  2. APO LEVOCARB [Suspect]
     Active Substance: CARBIDOPA\LEVODOPA
     Indication: GAIT DISTURBANCE
     Dosage: UNK
  3. ROPINIROLE. [Suspect]
     Active Substance: ROPINIROLE
     Indication: FALL
     Dosage: UNK
  4. APO LEVOCARB [Suspect]
     Active Substance: CARBIDOPA\LEVODOPA
     Indication: FALL
     Dosage: UNK
  5. APO LEVOCARB [Suspect]
     Active Substance: CARBIDOPA\LEVODOPA
     Indication: PARKINSONISM
  6. ENTACAPONE. [Suspect]
     Active Substance: ENTACAPONE
     Indication: GAIT DISTURBANCE
  7. ENTACAPONE. [Suspect]
     Active Substance: ENTACAPONE
     Indication: PARKINSONISM
  8. ROPINIROLE. [Suspect]
     Active Substance: ROPINIROLE
     Indication: GAIT DISTURBANCE
     Dosage: UNK
  9. ENTACAPONE. [Suspect]
     Active Substance: ENTACAPONE
     Indication: FALL

REACTIONS (3)
  - Confusional state [Unknown]
  - Somnolence [Unknown]
  - Drug ineffective [Unknown]
